FAERS Safety Report 25627265 (Version 2)
Quarter: 2025Q3

REPORT INFORMATION
  Report Type: Spontaneous
  Country: US (occurrence: US)
  Receive Date: 20250731
  Receipt Date: 20250808
  Transmission Date: 20251020
  Serious: No
  Sender: BLUEPRINT MEDICINES
  Company Number: US-Blueprint Medicines Corporation-2025-AER-01674

PATIENT
  Age: 49 Year
  Sex: Male

DRUGS (6)
  1. AYVAKIT [Suspect]
     Active Substance: AVAPRITINIB
     Indication: Gastrointestinal stromal tumour
     Dosage: 200 MG FOR 1 WEEK
     Route: 048
     Dates: start: 20250529, end: 202506
  2. AYVAKIT [Suspect]
     Active Substance: AVAPRITINIB
     Dosage: 250 MG FOR 1 WEEK
     Route: 048
     Dates: start: 202506, end: 202506
  3. AYVAKIT [Suspect]
     Active Substance: AVAPRITINIB
     Dosage: 275 MG FOR 1 WEEK
     Route: 048
     Dates: start: 202506
  4. AYVAKIT [Suspect]
     Active Substance: AVAPRITINIB
     Dosage: 225 MG FOR 1 WEEK
     Route: 048
     Dates: start: 202506, end: 202506
  5. LOSARTAN POTASSIUM [Concomitant]
     Active Substance: LOSARTAN POTASSIUM
     Indication: Product used for unknown indication
     Route: 065
  6. ZOFRAN [Concomitant]
     Active Substance: ONDANSETRON HYDROCHLORIDE
     Indication: Product used for unknown indication
     Route: 065

REACTIONS (2)
  - Blood sodium decreased [Unknown]
  - Product dose omission issue [Unknown]
